FAERS Safety Report 19577734 (Version 1)
Quarter: 2021Q3

REPORT INFORMATION
  Report Type: Spontaneous
  Country: US (occurrence: US)
  Receive Date: 20210719
  Receipt Date: 20210719
  Transmission Date: 20211014
  Serious: Yes (Hospitalization)
  Sender: FDA-Public Use
  Company Number: US-FRESENIUS KABI-FK202107300

PATIENT
  Age: 71 Year
  Sex: Male
  Weight: 89.7 kg

DRUGS (6)
  1. FOLINIC ACID [Suspect]
     Active Substance: LEUCOVORIN
     Indication: METASTASES TO LUNG
  2. IRINOTECAN [Suspect]
     Active Substance: IRINOTECAN
     Indication: METASTASES TO LUNG
  3. FLUOROURACIL (MANUFACTURER UNKNOWN) [Suspect]
     Active Substance: FLUOROURACIL
     Indication: GALLBLADDER CANCER
     Dosage: 5FU
     Route: 042
     Dates: start: 20210518, end: 20210603
  4. FLUOROURACIL (MANUFACTURER UNKNOWN) [Suspect]
     Active Substance: FLUOROURACIL
     Indication: METASTASES TO LUNG
  5. IRINOTECAN [Suspect]
     Active Substance: IRINOTECAN
     Indication: GALLBLADDER CANCER
     Dosage: NANOLIPOSOMAL IRINOTECAN
     Route: 042
     Dates: start: 20210518, end: 20210518
  6. FOLINIC ACID [Suspect]
     Active Substance: LEUCOVORIN
     Indication: GALLBLADDER CANCER
     Route: 042
     Dates: start: 20210518, end: 20210518

REACTIONS (1)
  - Abdominal pain [Unknown]

NARRATIVE: CASE EVENT DATE: 20210608
